FAERS Safety Report 5957782-7 (Version None)
Quarter: 2008Q4

REPORT INFORMATION
  Report Type: 
  Country: None (occurrence: None)
  Receive Date: 20081117
  Receipt Date: 20081031
  Transmission Date: 20090506
  Serious: Yes (Hospitalization, Other)
  Sender: FDA-Public Use
  Company Number: DSA_62309_2008

PATIENT
  Sex: Male
  Weight: 33.5662 kg

DRUGS (1)
  1. DIASTAT [Suspect]
     Indication: CONVULSION
     Dosage: 10 MG PRN RECTAL
     Route: 054

REACTIONS (2)
  - CONVULSION [None]
  - DRUG DISPENSING ERROR [None]
